FAERS Safety Report 5873640-0 (Version None)
Quarter: 2008Q3

REPORT INFORMATION
  Report Type: 
  Country: None (occurrence: None)
  Receive Date: 20080908
  Receipt Date: 20080829
  Transmission Date: 20090109
  Serious: Yes (Other)
  Sender: FDA-Public Use
  Company Number: A0745200A

PATIENT
  Age: 16 Year
  Sex: Female

DRUGS (2)
  1. LAMICTAL [Suspect]
     Indication: EPILEPSY
     Dosage: 225MG TWICE PER DAY
     Route: 048
     Dates: start: 20040101
  2. NO CONCURRENT MEDICATION [Concomitant]

REACTIONS (7)
  - CONVULSION [None]
  - DYSKINESIA [None]
  - DYSPHAGIA [None]
  - DYSPHEMIA [None]
  - PETIT MAL EPILEPSY [None]
  - SPEECH DISORDER [None]
  - TREMOR [None]
